FAERS Safety Report 5567239-3 (Version None)
Quarter: 2007Q4

REPORT INFORMATION
  Report Type: 
  Country: None (occurrence: None)
  Receive Date: 20071219
  Receipt Date: 20071128
  Transmission Date: 20080405
  Serious: No
  Sender: FDA-Public Use
  Company Number: US-BOEHRINGER INGELHEIM PHARMACEUTICALS, INC.-2007-BP-25267BP

PATIENT
  Sex: Male

DRUGS (4)
  1. ZANTAC 150 [Suspect]
     Indication: HIATUS HERNIA
     Route: 048
     Dates: start: 20070801
  2. ZETIA [Concomitant]
     Indication: BLOOD CHOLESTEROL
  3. ZOCOR [Concomitant]
     Indication: BLOOD CHOLESTEROL
  4. COZAAR [Concomitant]
     Indication: HYPERTENSION

REACTIONS (1)
  - DIARRHOEA [None]
